FAERS Safety Report 4981877-8 (Version None)
Quarter: 2006Q2

REPORT INFORMATION
  Report Type: 
  Country: None (occurrence: None)
  Receive Date: 20060425
  Receipt Date: 20060418
  Transmission Date: 20061013
  Serious: Yes (Death)
  Sender: FDA-Public Use
  Company Number: US-BRISTOL-MYERS SQUIBB COMPANY-13349964

PATIENT
  Age: 53 Year
  Sex: Male
  Weight: 102 kg

DRUGS (2)
  1. GLUCOPHAGE [Suspect]
     Indication: DIABETES MELLITUS
     Dosage: INITIATED THERAPY 2-3 YEARS AGO
  2. MORPHINE [Concomitant]

REACTIONS (1)
  - HEPATIC NEOPLASM MALIGNANT [None]
